FAERS Safety Report 9517315 (Version 1)
Quarter: 2013Q3

REPORT INFORMATION
  Report Type: Spontaneous
  Country: US (occurrence: US)
  Receive Date: 20130911
  Receipt Date: 20130911
  Transmission Date: 20140515
  Serious: No
  Sender: FDA-Public Use
  Company Number: US-ASTRAZENECA-2013SE63472

PATIENT
  Age: 46 Year
  Sex: Male
  Weight: 120.2 kg

DRUGS (1)
  1. SYMBICORT [Suspect]
     Indication: ASTHMA
     Dosage: 80/4.5MCG, TWO INHALATIONS, DAILY
     Route: 055

REACTIONS (3)
  - Dyspnoea [Unknown]
  - Intentional drug misuse [Unknown]
  - Drug dose omission [Unknown]
